FAERS Safety Report 23668161 (Version 1)
Quarter: 2024Q1

REPORT INFORMATION
  Report Type: Spontaneous
  Country: CN (occurrence: CN)
  Receive Date: 20240325
  Receipt Date: 20240325
  Transmission Date: 20240410
  Serious: Yes (Death, Other)
  Sender: FDA-Public Use
  Company Number: CN-BRACCO-2024CN01181

PATIENT
  Age: 44 Year
  Sex: Male

DRUGS (4)
  1. SULPHUR HEXAFLUORIDE [Suspect]
     Active Substance: SULFUR HEXAFLUORIDE
     Indication: Computerised tomogram
     Dosage: 0.5 ML, SINGLE
     Route: 042
     Dates: start: 20240312, end: 20240312
  2. SULPHUR HEXAFLUORIDE [Suspect]
     Active Substance: SULFUR HEXAFLUORIDE
     Indication: Computerised tomogram
     Dosage: 0.5 ML, SINGLE
     Route: 042
     Dates: start: 20240312, end: 20240312
  3. SULPHUR HEXAFLUORIDE [Suspect]
     Active Substance: SULFUR HEXAFLUORIDE
     Indication: Computerised tomogram
     Dosage: 0.5 ML, SINGLE
     Route: 042
     Dates: start: 20240312, end: 20240312
  4. SODIUM CHLORIDE [Concomitant]
     Active Substance: SODIUM CHLORIDE
     Indication: Flushing
     Dosage: 5 ML
     Route: 042
     Dates: start: 20240312, end: 20240312

REACTIONS (1)
  - Anaphylactic shock [Fatal]

NARRATIVE: CASE EVENT DATE: 20240312
